FAERS Safety Report 20582311 (Version 1)
Quarter: 2022Q1

REPORT INFORMATION
  Report Type: Spontaneous
  Country: US (occurrence: None)
  Receive Date: 20220310
  Receipt Date: 20220310
  Transmission Date: 20220424
  Serious: Yes (Death)
  Sender: FDA-Public Use
  Company Number: None

PATIENT
  Age: 42 Year
  Sex: Male

DRUGS (2)
  1. AVASTIN [Suspect]
     Active Substance: BEVACIZUMAB
     Indication: Rectal cancer
     Dosage: 660MG Q 2 WEEKS IV?
     Route: 042
     Dates: start: 20220121, end: 20220310
  2. IRINOTECAN [Suspect]
     Active Substance: IRINOTECAN
     Indication: Product used for unknown indication
     Dosage: 350MG Q2 WEEKS IV?
     Route: 042
     Dates: start: 20220121, end: 20220310

REACTIONS (1)
  - Death [None]

NARRATIVE: CASE EVENT DATE: 20220310
